FAERS Safety Report 19025435 (Version 1)
Quarter: 2021Q1

REPORT INFORMATION
  Report Type: Spontaneous
  Country: US (occurrence: US)
  Receive Date: 20210318
  Receipt Date: 20210318
  Transmission Date: 20210420
  Serious: Yes (Other)
  Sender: FDA-Public Use
  Company Number: US-009507513-2103USA003679

PATIENT
  Age: 51 Year
  Sex: Female

DRUGS (1)
  1. PRINIVIL [Suspect]
     Active Substance: LISINOPRIL

REACTIONS (4)
  - Angioedema [Unknown]
  - Delusion [Unknown]
  - Akathisia [Unknown]
  - Anxiety [Unknown]

NARRATIVE: CASE EVENT DATE: 202011
